FAERS Safety Report 4816409-8 (Version None)
Quarter: 2005Q4

REPORT INFORMATION
  Report Type: 
  Country: None (occurrence: None)
  Receive Date: 20051028
  Receipt Date: 20051019
  Transmission Date: 20060501
  Serious: Yes (Hospitalization)
  Sender: FDA-Public Use
  Company Number: HQWYE129920OCT05

PATIENT
  Sex: Female

DRUGS (1)
  1. CORDARONE [Suspect]

REACTIONS (3)
  - LUNG DISORDER [None]
  - PLATELET COUNT DECREASED [None]
  - PULMONARY EMBOLISM [None]
